FAERS Safety Report 5738253-X (Version None)
Quarter: 2008Q2

REPORT INFORMATION
  Report Type: 
  Country: None (occurrence: None)
  Receive Date: 20080514
  Receipt Date: 20080502
  Transmission Date: 20081010
  Serious: Yes (Other)
  Sender: FDA-Public Use
  Company Number: GB-PFIZER INC-2008035135

PATIENT
  Sex: Male

DRUGS (2)
  1. EPANUTIN SUSPENSION [Suspect]
     Indication: EPILEPSY
  2. CARBAMAZEPINE [Concomitant]

REACTIONS (1)
  - PSYCHOMOTOR HYPERACTIVITY [None]
